FAERS Safety Report 8259509-5 (Version None)
Quarter: 2012Q2

REPORT INFORMATION
  Report Type: 
  Country: None (occurrence: None)
  Receive Date: 20120404
  Receipt Date: 20120329
  Transmission Date: 20120825
  Serious: Yes (Life-Threatening, Other)
  Sender: FDA-Public Use
  Company Number: JP-SANOFI-AVENTIS-2011SA034865

PATIENT
  Age: 72 Year
  Sex: Female
  Weight: 40 kg

DRUGS (24)
  1. OXALIPLATIN [Suspect]
     Route: 041
     Dates: start: 20110117, end: 20110117
  2. GIMERACIL/OTERACIL POTASSIUM/TEGAFUR [Suspect]
     Route: 048
     Dates: start: 20101220, end: 20110103
  3. ANTITHROMBIN III [Concomitant]
     Indication: DISSEMINATED INTRAVASCULAR COAGULATION
     Route: 041
     Dates: start: 20110502, end: 20110505
  4. VENILON [Concomitant]
     Indication: HYPOALBUMINAEMIA
     Route: 041
     Dates: start: 20110502, end: 20110504
  5. OXALIPLATIN [Suspect]
     Route: 041
     Dates: start: 20110207, end: 20110207
  6. GIMERACIL/OTERACIL POTASSIUM/TEGAFUR [Suspect]
     Route: 048
     Dates: start: 20110228, end: 20110314
  7. ZOSYN [Concomitant]
     Indication: INFECTION
     Route: 041
     Dates: start: 20110502, end: 20110507
  8. OXALIPLATIN [Suspect]
     Route: 041
     Dates: start: 20101129, end: 20101129
  9. GIMERACIL/OTERACIL POTASSIUM/TEGAFUR [Suspect]
     Route: 048
     Dates: start: 20101108, end: 20101122
  10. GIMERACIL/OTERACIL POTASSIUM/TEGAFUR [Suspect]
     Route: 048
     Dates: start: 20110207, end: 20110221
  11. GIMERACIL/OTERACIL POTASSIUM/TEGAFUR [Suspect]
     Route: 048
     Dates: start: 20110328, end: 20110411
  12. POLARAMINE [Concomitant]
     Indication: PREMEDICATION
     Route: 041
     Dates: start: 20101108, end: 20110418
  13. GIMERACIL/OTERACIL POTASSIUM/TEGAFUR [Suspect]
     Route: 048
     Dates: start: 20110117, end: 20110131
  14. OMEPRAZOLE [Concomitant]
     Indication: ULCER
     Route: 041
     Dates: start: 20110502, end: 20110511
  15. GIMERACIL/OTERACIL POTASSIUM/TEGAFUR [Suspect]
     Indication: COLON CANCER
     Route: 048
     Dates: start: 20101129, end: 20101213
  16. DEXAMETHASONE [Concomitant]
     Indication: PREMEDICATION
     Route: 041
     Dates: start: 20101108, end: 20110418
  17. OXALIPLATIN [Suspect]
     Route: 041
     Dates: start: 20101220, end: 20101220
  18. GIMERACIL/OTERACIL POTASSIUM/TEGAFUR [Suspect]
     Route: 048
     Dates: start: 20110418, end: 20110502
  19. ELASPOL [Concomitant]
     Indication: INFLAMMATION
     Route: 041
     Dates: start: 20110502, end: 20110502
  20. OXALIPLATIN [Suspect]
     Indication: COLON CANCER
     Route: 041
     Dates: start: 20101108, end: 20101108
  21. OXALIPLATIN [Suspect]
     Route: 041
     Dates: start: 20110228, end: 20110228
  22. OXALIPLATIN [Suspect]
     Route: 041
     Dates: start: 20110328, end: 20110328
  23. OXALIPLATIN [Suspect]
     Route: 041
     Dates: start: 20110418, end: 20110418
  24. NOREPINEPHRINE BITARTRATE [Concomitant]
     Indication: HYPOTENSION
     Route: 058
     Dates: start: 20110502, end: 20110511

REACTIONS (9)
  - PNEUMONIA [None]
  - PLATELET COUNT DECREASED [None]
  - VOMITING [None]
  - ASPIRATION [None]
  - HAEMOGLOBIN DECREASED [None]
  - DISSEMINATED INTRAVASCULAR COAGULATION [None]
  - DEPRESSED LEVEL OF CONSCIOUSNESS [None]
  - CEREBRAL HAEMORRHAGE [None]
  - RESPIRATORY FAILURE [None]
